FAERS Safety Report 19940287 (Version 1)
Quarter: 2021Q4

REPORT INFORMATION
  Report Type: Spontaneous
  Country: US (occurrence: US)
  Receive Date: 20211011
  Receipt Date: 20211011
  Transmission Date: 20220304
  Serious: No
  Sender: FDA-Public Use
  Company Number: US-BIOGEN-2021BI01056658

PATIENT
  Age: 43 Year
  Sex: Female

DRUGS (2)
  1. VUMERITY [Suspect]
     Active Substance: DIROXIMEL FUMARATE
     Indication: Product used for unknown indication
     Route: 048
     Dates: start: 202109, end: 2021
  2. VUMERITY [Suspect]
     Active Substance: DIROXIMEL FUMARATE
     Route: 048
     Dates: start: 2021

REACTIONS (2)
  - Swelling of eyelid [Unknown]
  - Nausea [Unknown]

NARRATIVE: CASE EVENT DATE: 20210928
